FAERS Safety Report 11459390 (Version 2)
Quarter: 2016Q1

REPORT INFORMATION
  Report Type: Spontaneous
  Country: US (occurrence: US)
  Receive Date: 20150904
  Receipt Date: 20160115
  Transmission Date: 20160525
  Serious: No
  Sender: FDA-Public Use
  Company Number: US-JNJFOC-20150809525

PATIENT
  Age: 65 Year
  Sex: Female
  Weight: 58.97 kg

DRUGS (7)
  1. BIOTIN [Concomitant]
     Active Substance: BIOTIN
     Dosage: ALTERNATE DAYS
     Route: 065
  2. TOPAMAX [Suspect]
     Active Substance: TOPIRAMATE
     Indication: SEIZURE
     Dosage: STARTED IN 2002 OR 2003
     Route: 048
  3. SIMVASTATIN. [Concomitant]
     Active Substance: SIMVASTATIN
     Indication: BLOOD CHOLESTEROL INCREASED
     Route: 065
  4. TOPAMAX [Suspect]
     Active Substance: TOPIRAMATE
     Indication: SEIZURE
     Route: 048
     Dates: start: 20151230
  5. VALSARTAN. [Concomitant]
     Active Substance: VALSARTAN
     Indication: HYPERTENSION
     Route: 065
  6. TOPIRAMATE. [Suspect]
     Active Substance: TOPIRAMATE
     Indication: SEIZURE
     Route: 048
     Dates: start: 20151106, end: 20151229
  7. SELENIUM [Concomitant]
     Active Substance: SELENIUM
     Dosage: ALTERNATE DAYS
     Route: 065

REACTIONS (8)
  - Drug intolerance [Unknown]
  - Dizziness [Recovered/Resolved]
  - Nausea [Recovering/Resolving]
  - Bone pain [Not Recovered/Not Resolved]
  - Feeling abnormal [Recovered/Resolved]
  - Visual impairment [Unknown]
  - Palpitations [Unknown]
  - Headache [Recovered/Resolved]

NARRATIVE: CASE EVENT DATE: 201512
